FAERS Safety Report 20098565 (Version 1)
Quarter: 2021Q4

REPORT INFORMATION
  Report Type: Spontaneous
  Country: CA (occurrence: CA)
  Receive Date: 20211122
  Receipt Date: 20211122
  Transmission Date: 20220303
  Serious: Yes (Hospitalization)
  Sender: FDA-Public Use
  Company Number: CA-PFIZER INC-202101555869

PATIENT
  Age: 77 Year
  Sex: Female
  Weight: 102 kg

DRUGS (22)
  1. AZITHROMYCIN [Suspect]
     Active Substance: AZITHROMYCIN
     Indication: Pneumonia
     Dosage: 500 MG, 1 EVERY 24 HOURS
     Route: 042
  2. CEFTRIAXONE SODIUM [Suspect]
     Active Substance: CEFTRIAXONE SODIUM
     Indication: Pneumonia
     Dosage: 2000 MG, 1 EVERY 24 HOURS
     Route: 042
  3. ACETAMINOPHEN [Concomitant]
     Active Substance: ACETAMINOPHEN
  4. CHLORHEXIDINE [Concomitant]
     Active Substance: CHLORHEXIDINE
  5. DEXAMETHASONE [Concomitant]
     Active Substance: DEXAMETHASONE
  6. DOXYCYCLINE [Concomitant]
     Active Substance: DOXYCYCLINE
  7. ENOXAPARIN [Concomitant]
     Active Substance: ENOXAPARIN
  8. EPINEPHRINE [Concomitant]
     Active Substance: EPINEPHRINE
  9. FUROSEMIDE [Concomitant]
     Active Substance: FUROSEMIDE
  10. GLYCERIN [Concomitant]
     Active Substance: GLYCERIN
  11. INSULIN GLARGINE [Concomitant]
     Active Substance: INSULIN GLARGINE
  12. INSULIN NOS [Concomitant]
     Active Substance: INSULIN NOS
  13. MIDAZOLAM [Concomitant]
     Active Substance: MIDAZOLAM
  14. MORPHINE [Concomitant]
     Active Substance: MORPHINE
  15. ONDANSETRON [Concomitant]
     Active Substance: ONDANSETRON
  16. OXAZEPAM [Concomitant]
     Active Substance: OXAZEPAM
  17. POLYETHYLENE GLYCOLS [Concomitant]
     Active Substance: POLYETHYLENE GLYCOLS
  18. RANITIDINE [Concomitant]
     Active Substance: RANITIDINE
  19. ROSUVASTATIN [Concomitant]
     Active Substance: ROSUVASTATIN
     Route: 065
  20. ALBUTEROL [Concomitant]
     Active Substance: ALBUTEROL
  21. SODIUM PHOSPHATE [Concomitant]
     Active Substance: SODIUM PHOSPHATE
  22. SPIRIVA [Concomitant]
     Active Substance: TIOTROPIUM BROMIDE MONOHYDRATE
     Route: 065

REACTIONS (1)
  - Clostridium difficile colitis [Recovered/Resolved]
